FAERS Safety Report 24611388 (Version 1)
Quarter: 2024Q4

REPORT INFORMATION
  Report Type: Spontaneous
  Country: PL (occurrence: PL)
  Receive Date: 20241113
  Receipt Date: 20241113
  Transmission Date: 20250115
  Serious: Yes (Hospitalization, Other)
  Sender: NOVITIUM PHARMA
  Company Number: PL-NOVITIUMPHARMA-2024PLNVP02507

PATIENT
  Age: 46 Year

DRUGS (1)
  1. CARBAMAZEPINE [Suspect]
     Active Substance: CARBAMAZEPINE
     Indication: Product used for unknown indication

REACTIONS (6)
  - Arrhythmia [Unknown]
  - Respiratory distress [Unknown]
  - Suicide attempt [Unknown]
  - Intentional overdose [Unknown]
  - Ischaemia [Unknown]
  - Toxicity to various agents [Unknown]
